FAERS Safety Report 8045699-6 (Version None)
Quarter: 2012Q1

REPORT INFORMATION
  Report Type: 
  Country: None (occurrence: None)
  Receive Date: 20120113
  Receipt Date: 20120109
  Transmission Date: 20120608
  Serious: Yes (Other)
  Sender: FDA-Public Use
  Company Number: US-US-EMD SERONO, INC.-7105822

PATIENT
  Sex: Female

DRUGS (19)
  1. ZOLPIDEM [Concomitant]
  2. AMPYRA [Concomitant]
  3. CELEXA [Concomitant]
  4. DEXILANT [Concomitant]
  5. REBIF [Suspect]
     Indication: PRODUCT USED FOR UNKNOWN INDICATION
     Route: 058
  6. VERAMYST [Concomitant]
  7. XOPENEX HFA [Concomitant]
  8. ALVESCO [Concomitant]
  9. VITAMIN D [Concomitant]
  10. IBUPROFEN (ADVIL) [Concomitant]
  11. NUVIGIL [Concomitant]
  12. GABAPENTIN [Concomitant]
  13. FUROSEMIDE [Concomitant]
  14. MULTI-VITAMIN [Concomitant]
  15. STEROIDS [Concomitant]
     Dates: start: 20111001
  16. RESTASIS [Concomitant]
  17. SPIRONOLACTONE [Concomitant]
  18. AXID [Concomitant]
  19. MELATONIN [Concomitant]

REACTIONS (3)
  - SLEEP DISORDER [None]
  - DIABETES MELLITUS [None]
  - DIABETIC RETINOPATHY [None]
